FAERS Safety Report 5944325-7 (Version None)
Quarter: 2008Q4

REPORT INFORMATION
  Report Type: 
  Country: None (occurrence: None)
  Receive Date: 20081105
  Receipt Date: 20081029
  Transmission Date: 20090506
  Serious: Yes (Hospitalization)
  Sender: FDA-Public Use
  Company Number: US024944

PATIENT
  Age: 60 Year
  Sex: Male
  Weight: 108 kg

DRUGS (26)
  1. TREANDA [Suspect]
     Indication: NON-HODGKIN'S LYMPHOMA
     Dosage: 90 MG/M2 DAY 1, 4 INTRAVENOUS
     Route: 042
     Dates: start: 20080903, end: 20080906
  2. BORTEZOMIB [Suspect]
     Indication: NON-HODGKIN'S LYMPHOMA
     Dosage: 1.3 MG/M2 DAY 1, 4, 8, AND 11 INTRAVENOUS
     Route: 042
     Dates: start: 20080903, end: 20080913
  3. RITUXIMAB [Suspect]
     Indication: NON-HODGKIN'S LYMPHOMA
  4. ASPIRIN [Concomitant]
  5. ALPRAZOLAM [Concomitant]
  6. PROTONIX [Concomitant]
  7. NITROGLYCERIN [Concomitant]
  8. ALBUTEROL [Concomitant]
  9. PRIMIDONE [Concomitant]
  10. VYTORIN [Concomitant]
  11. POTASSIUM IODIDE [Concomitant]
  12. PERCOCET [Concomitant]
  13. EFFEXOR [Concomitant]
  14. COREG [Concomitant]
  15. NORVASC [Concomitant]
  16. PHENERGAN HCL [Concomitant]
  17. ZOFRAN [Concomitant]
  18. REGLAN [Concomitant]
  19. BACTRIM DS [Concomitant]
  20. ZOFRAN [Concomitant]
  21. REGLAN [Concomitant]
  22. LUNESTA [Concomitant]
  23. COZAAR [Concomitant]
  24. VITAMIN B [Concomitant]
  25. GLIPIZIDE [Concomitant]
  26. JANUMET [Concomitant]

REACTIONS (13)
  - ASTHENIA [None]
  - C-REACTIVE PROTEIN INCREASED [None]
  - DECREASED APPETITE [None]
  - DIARRHOEA [None]
  - DIZZINESS [None]
  - DYSPNOEA EXERTIONAL [None]
  - FATIGUE [None]
  - HEART RATE ABNORMAL [None]
  - HYPOAESTHESIA [None]
  - NAUSEA [None]
  - ORTHOSTATIC HYPOTENSION [None]
  - PARAESTHESIA [None]
  - THROMBOCYTOPENIA [None]
